FAERS Safety Report 16919498 (Version 1)
Quarter: 2019Q4

REPORT INFORMATION
  Report Type: Spontaneous
  Country: JP (occurrence: JP)
  Receive Date: 20191015
  Receipt Date: 20191015
  Transmission Date: 20200122
  Serious: Yes (Other)
  Sender: FDA-Public Use
  Company Number: JP-JNJFOC-20191007422

PATIENT
  Age: 70 Year
  Sex: Male

DRUGS (3)
  1. AZELNIDIPINE [Suspect]
     Active Substance: AZELNIDIPINE
     Indication: PAIN
     Dosage: UNKNOWN
     Route: 048
  2. ELOBIXIBAT [Suspect]
     Active Substance: ELOBIXIBAT
     Indication: CONSTIPATION
     Dosage: UNKNOWN
     Route: 048
     Dates: start: 20180816, end: 20180929
  3. TRAMCET [Suspect]
     Active Substance: ACETAMINOPHEN\TRAMADOL
     Indication: PAIN
     Dosage: UNKNOWN
     Route: 048
     Dates: start: 20180323

REACTIONS (2)
  - Pancreatic carcinoma [Unknown]
  - Constipation [Unknown]

NARRATIVE: CASE EVENT DATE: 2018
